FAERS Safety Report 4626949-2 (Version None)
Quarter: 2005Q1

REPORT INFORMATION
  Report Type: 
  Country: None (occurrence: None)
  Receive Date: 20050331
  Receipt Date: 20050322
  Transmission Date: 20050727
  Serious: Yes (Hospitalization, Other)
  Sender: FDA-Public Use
  Company Number: 2005048397

PATIENT
  Age: 74 Year
  Sex: Male

DRUGS (4)
  1. LIPITOR [Suspect]
     Indication: HYPERCHOLESTEROLAEMIA
     Dosage: 10 MG (10 MG, 1 IN 1 D), ORAL
     Route: 048
     Dates: start: 20010601, end: 20050205
  2. OSELTAMIVIR (OSELTAMIVIR) [Suspect]
     Indication: INFLUENZA
     Dosage: ORAL
     Route: 048
     Dates: start: 20050205, end: 20050210
  3. URSODIOL [Concomitant]
  4. NIFEDIPINE [Concomitant]

REACTIONS (2)
  - BLOOD CREATINE PHOSPHOKINASE INCREASED [None]
  - INFLUENZA [None]
